FAERS Safety Report 5682301-2 (Version None)
Quarter: 2008Q1

REPORT INFORMATION
  Report Type: 
  Country: None (occurrence: None)
  Receive Date: 20080327
  Receipt Date: 20080317
  Transmission Date: 20080703
  Serious: Yes (Other)
  Sender: FDA-Public Use
  Company Number: PHEH2008US02874

PATIENT
  Sex: Female

DRUGS (1)
  1. ZELNORM [Suspect]

REACTIONS (7)
  - ASTHENIA [None]
  - CHEST PAIN [None]
  - HEART RATE INCREASED [None]
  - INFECTIOUS MONONUCLEOSIS [None]
  - MUSCLE ATROPHY [None]
  - NEUROPATHY PERIPHERAL [None]
  - PARAESTHESIA [None]
